FAERS Safety Report 8229756-7 (Version None)
Quarter: 2012Q1

REPORT INFORMATION
  Report Type: 
  Country: None (occurrence: None)
  Receive Date: 20120322
  Receipt Date: 20120313
  Transmission Date: 20120608
  Serious: Yes (Other)
  Sender: FDA-Public Use
  Company Number: US-ASTRAZENECA-2011SE25729

PATIENT
  Age: 41 Year
  Sex: Male
  Weight: 113.4 kg

DRUGS (10)
  1. SEROQUEL [Suspect]
     Dosage: 25MG THREE TIMES DAILY
     Route: 048
  2. VALIUM [Concomitant]
     Indication: BACK PAIN
  3. SEROQUEL [Suspect]
     Dosage: 100MG NOON AND 100MG AT NIGHT
     Route: 048
  4. MORPHINE [Concomitant]
     Indication: BACK PAIN
  5. VALIUM [Concomitant]
     Indication: ANXIETY
  6. DEPAKOTE [Concomitant]
  7. LITHIUM CARBONATE [Concomitant]
  8. SEROQUEL [Suspect]
     Indication: BIPOLAR DISORDER
     Dosage: 200MG IN AM AND 200MG AT NIGHT
     Route: 048
     Dates: start: 20080101
  9. NEXIUM [Suspect]
     Indication: GASTROOESOPHAGEAL REFLUX DISEASE
     Route: 065
  10. FISH OIL [Concomitant]

REACTIONS (7)
  - FATIGUE [None]
  - CARDIOMEGALY [None]
  - DECREASED ACTIVITY [None]
  - THERAPEUTIC RESPONSE UNEXPECTED [None]
  - GASTROOESOPHAGEAL REFLUX DISEASE [None]
  - HAEMORRHAGE [None]
  - DRUG INEFFECTIVE [None]
